FAERS Safety Report 10162822 (Version 2)
Quarter: 2014Q2

REPORT INFORMATION
  Report Type: Spontaneous
  Country: IN (occurrence: IN)
  Receive Date: 20140509
  Receipt Date: 20140513
  Transmission Date: 20141212
  Serious: Yes (Other)
  Sender: FDA-Public Use
  Company Number: IN-009507513-1405IND004066

PATIENT
  Age: 39 Year
  Sex: Male
  Weight: 75 kg

DRUGS (2)
  1. JANUMET [Suspect]
     Indication: DIABETES MELLITUS
     Dosage: DOSE 2 DF; BD
     Route: 048
  2. LANTUS [Concomitant]
     Dosage: 32 U

REACTIONS (5)
  - Pharyngitis [Recovering/Resolving]
  - Urine output decreased [Unknown]
  - Pruritus genital [Unknown]
  - Blood glucose increased [Unknown]
  - Overdose [Unknown]
